FAERS Safety Report 6985023-0 (Version None)
Quarter: 2010Q3

REPORT INFORMATION
  Report Type: 
  Country: None (occurrence: None)
  Receive Date: 20100915
  Receipt Date: 20100903
  Transmission Date: 20110219
  Serious: Yes (Hospitalization)
  Sender: FDA-Public Use
  Company Number: PHHY2010US59526

PATIENT
  Sex: Female

DRUGS (2)
  1. CLOZARIL [Suspect]
     Indication: SCHIZOPHRENIA
     Dosage: UNK
     Dates: start: 20100601
  2. REBIF [Suspect]
     Dosage: 44 MCG 3 IN 1 WEEK
     Route: 058
     Dates: start: 20040506

REACTIONS (2)
  - GAIT DISTURBANCE [None]
  - SOMNOLENCE [None]
